FAERS Safety Report 6131614-9 (Version None)
Quarter: 2009Q1

REPORT INFORMATION
  Report Type: 
  Country: None (occurrence: None)
  Receive Date: 20090325
  Receipt Date: 20081125
  Transmission Date: 20090719
  Serious: No
  Sender: FDA-Public Use
  Company Number: US-BRISTOL-MYERS SQUIBB COMPANY-14419295

PATIENT
  Age: 63 Year
  Sex: Male

DRUGS (6)
  1. ERBITUX [Suspect]
     Indication: HEAD AND NECK CANCER
     Dosage: 1DOSAGE FORM=LOADING DOSE 400MG/M2 + THEN 250MG/M2.LATER DOSE DECRE TO 200MG/M2 + INCRE TO 300MG/M2
     Dates: start: 20071001, end: 20080501
  2. ASPIRIN [Concomitant]
  3. XANAX [Concomitant]
  4. TRAZODONE HCL [Concomitant]
  5. TYLENOL [Concomitant]
     Indication: PREMEDICATION
  6. BENADRYL [Concomitant]
     Indication: PREMEDICATION

REACTIONS (2)
  - DERMATITIS ACNEIFORM [None]
  - DRY SKIN [None]
